FAERS Safety Report 5428478-5 (Version None)
Quarter: 2007Q3

REPORT INFORMATION
  Report Type: 
  Country: None (occurrence: None)
  Receive Date: 20070824
  Receipt Date: 20070808
  Transmission Date: 20080115
  Serious: Yes (Death)
  Sender: FDA-Public Use
  Company Number: 2006-03-0334

PATIENT
  Age: 6 Year
  Sex: Male
  Weight: 28.5766 kg

DRUGS (30)
  1. CLARITIN [Suspect]
     Indication: DRUG USE FOR UNKNOWN INDICATION
  2. LORATADINE [Suspect]
     Indication: DRUG USE FOR UNKNOWN INDICATION
  3. ALAVERT [Suspect]
     Indication: DRUG USE FOR UNKNOWN INDICATION
  4. ALLERGY MEDICATION [Concomitant]
  5. INFLUENZA VACCINE [Concomitant]
  6. VERMOX [Concomitant]
  7. PROMETHAZINE [Concomitant]
  8. OMNICEF [Concomitant]
  9. SUDAFED 12 HOUR [Concomitant]
  10. AUGMENTIN '125' [Concomitant]
  11. DURICEF [Concomitant]
  12. NASONEX [Concomitant]
  13. CIPRO [Concomitant]
  14. SINGULAIR [Concomitant]
  15. AUGMENTIN '125' [Concomitant]
  16. FLOXIN OTIC /01448501/ [Concomitant]
  17. ZITHROMAX [Concomitant]
  18. XOPENEX [Concomitant]
  19. FLUMADINE [Concomitant]
  20. TYLENOL W/ CODEINE [Concomitant]
  21. TUMS [Concomitant]
  22. MAALOX FAST BLOCKER [Concomitant]
  23. BENADRYL [Concomitant]
  24. TRIAMINIC /00078201/ [Concomitant]
  25. HYDROCORTISONE [Concomitant]
  26. PYRANTEL [Concomitant]
  27. DEXAMETHASONE 0.5MG TAB [Concomitant]
  28. MOTRIN [Concomitant]
  29. ALLEGRA [Concomitant]
  30. ZANTAC 150 [Concomitant]

REACTIONS (4)
  - ARRHYTHMIA [None]
  - SUDDEN DEATH [None]
  - UNRESPONSIVE TO STIMULI [None]
  - VOMITING [None]
